FAERS Safety Report 10703426 (Version 3)
Quarter: 2015Q1

REPORT INFORMATION
  Report Type: Spontaneous
  Country: JP (occurrence: JP)
  Receive Date: 20150112
  Receipt Date: 20150130
  Transmission Date: 20150721
  Serious: Yes (Death, Hospitalization, Other)
  Sender: FDA-Public Use
  Company Number: JP-ROCHE-1519383

PATIENT
  Age: 60 Year
  Sex: Female
  Weight: 59 kg

DRUGS (4)
  1. VOLTAREN [Suspect]
     Active Substance: DICLOFENAC SODIUM
     Indication: PRODUCT USED FOR UNKNOWN INDICATION
     Dosage: DOSAGE IS UNCERTAIN.
     Route: 065
  2. AVASTIN [Suspect]
     Active Substance: BEVACIZUMAB
     Indication: BREAST CANCER METASTATIC
     Dosage: TREATMENT LINE: 5?COMPLETED TREATMENT CYCLE NUMBER: 5
     Route: 041
  3. PACLITAXEL. [Concomitant]
     Active Substance: PACLITAXEL
     Indication: BREAST CANCER METASTATIC
     Dosage: COMPLETED TREATMENT CYCLE NUMBER: 5
     Route: 041
     Dates: start: 20140115
  4. LOXONIN [Suspect]
     Active Substance: LOXOPROFEN SODIUM
     Indication: PRODUCT USED FOR UNKNOWN INDICATION
     Dosage: DOSAGE IS UNCERTAIN.
     Route: 065

REACTIONS (8)
  - Ileus [Unknown]
  - Rectal stenosis [Unknown]
  - Pancreatitis [Recovering/Resolving]
  - Metastases to rectum [Unknown]
  - Gastrointestinal perforation [Recovering/Resolving]
  - Breast cancer metastatic [Fatal]
  - Small intestinal perforation [Recovered/Resolved]
  - Duodenal stenosis [Unknown]

NARRATIVE: CASE EVENT DATE: 20140601
